FAERS Safety Report 19216286 (Version 1)
Quarter: 2021Q2

REPORT INFORMATION
  Report Type: Spontaneous
  Country: AU (occurrence: AU)
  Receive Date: 20210505
  Receipt Date: 20210505
  Transmission Date: 20210717
  Serious: Yes (Other)
  Sender: FDA-Public Use
  Company Number: AU-SUN PHARMACEUTICAL INDUSTRIES LTD-2021R1-294382

PATIENT
  Age: 75 Year
  Sex: Male

DRUGS (10)
  1. SULPHAMETHOXAZOLE/TRIMETHOPRIM [Suspect]
     Active Substance: SULFAMETHOXAZOLE\TRIMETHOPRIM
     Indication: DEBRIDEMENT
  2. SULPHAMETHOXAZOLE/TRIMETHOPRIM [Suspect]
     Active Substance: SULFAMETHOXAZOLE\TRIMETHOPRIM
     Indication: PSEUDOMONAS INFECTION
     Dosage: UNK
     Route: 065
  3. INFLIXIMAB [Suspect]
     Active Substance: INFLIXIMAB
     Indication: PSEUDOMONAS INFECTION
     Dosage: UNK
     Route: 065
  4. INFLIXIMAB [Suspect]
     Active Substance: INFLIXIMAB
     Indication: DEBRIDEMENT
  5. PREDNISONE. [Suspect]
     Active Substance: PREDNISONE
     Indication: DEBRIDEMENT
  6. CYCLOSPORIN [Suspect]
     Active Substance: CYCLOSPORINE
     Indication: PSEUDOMONAS INFECTION
     Dosage: 150 MILLIGRAM, BID
     Route: 065
  7. CYCLOSPORIN [Suspect]
     Active Substance: CYCLOSPORINE
     Indication: DEBRIDEMENT
  8. MINOMYCIN [Suspect]
     Active Substance: MINOCYCLINE HYDROCHLORIDE
     Indication: PSEUDOMONAS INFECTION
     Dosage: UNK
     Route: 065
  9. PREDNISONE. [Suspect]
     Active Substance: PREDNISONE
     Indication: PSEUDOMONAS INFECTION
     Dosage: 40 MILLIGRAM, DAILY
     Route: 065
  10. MINOMYCIN [Suspect]
     Active Substance: MINOCYCLINE HYDROCHLORIDE
     Indication: DEBRIDEMENT

REACTIONS (1)
  - Treatment failure [Unknown]
